FAERS Safety Report 6525762-9 (Version None)
Quarter: 2009Q4

REPORT INFORMATION
  Report Type: 
  Country: None (occurrence: None)
  Receive Date: 20091224
  Receipt Date: 20091210
  Transmission Date: 20100525
  Serious: Yes (Other)
  Sender: FDA-Public Use
  Company Number: DSA_42221_2009

PATIENT
  Sex: Male

DRUGS (4)
  1. BUPROPION HCL [Suspect]
     Indication: DEPRESSION
     Dosage: (300 MG, TOTAL DAILY DOSE ORAL)
     Route: 048
     Dates: start: 20090826, end: 20091009
  2. LAMOTRIGINE [Concomitant]
  3. DOXEPIN HCL [Concomitant]
  4. BISOPROLOL [Concomitant]

REACTIONS (1)
  - PARKINSON'S DISEASE [None]
